FAERS Safety Report 17510596 (Version 1)
Quarter: 2020Q1

REPORT INFORMATION
  Report Type: Report from Study
  Country: SA (occurrence: SA)
  Receive Date: 20200306
  Receipt Date: 20200306
  Transmission Date: 20200409
  Serious: Yes (Hospitalization)
  Sender: FDA-Public Use
  Company Number: SA-JNJFOC-20200237138

PATIENT
  Age: 50 Year
  Sex: Female

DRUGS (1)
  1. SIMPONI [Suspect]
     Active Substance: GOLIMUMAB
     Indication: PSORIATIC ARTHROPATHY
     Dosage: STRENGTH: 50 MG/0.5ML
     Route: 058
     Dates: start: 20181220

REACTIONS (2)
  - Nephrolithiasis [Recovered/Resolved]
  - Lymphadenectomy [Unknown]

NARRATIVE: CASE EVENT DATE: 201912
